FAERS Safety Report 5710304-8 (Version None)
Quarter: 2008Q2

REPORT INFORMATION
  Report Type: 
  Country: None (occurrence: None)
  Receive Date: 20080418
  Receipt Date: 20080407
  Transmission Date: 20081010
  Serious: Yes (Other)
  Sender: FDA-Public Use
  Company Number: US-PFIZER INC-2008030190

PATIENT
  Sex: Male
  Weight: 72.727 kg

DRUGS (1)
  1. DILANTIN [Suspect]
     Indication: HEAD INJURY

REACTIONS (5)
  - DIZZINESS [None]
  - HEADACHE [None]
  - IMPAIRED DRIVING ABILITY [None]
  - LOSS OF CONSCIOUSNESS [None]
  - NERVOUSNESS [None]
